FAERS Safety Report 11985018 (Version 2)
Quarter: 2016Q1

REPORT INFORMATION
  Report Type: Report from Study
  Country: BR (occurrence: BR)
  Receive Date: 20160201
  Receipt Date: 20160303
  Transmission Date: 20160526
  Serious: Yes (Hospitalization, Other)
  Sender: FDA-Public Use
  Company Number: PHHY2016BR012146

PATIENT
  Age: 50 Year
  Sex: Female
  Weight: 65 kg

DRUGS (3)
  1. AFINITOR [Suspect]
     Active Substance: EVEROLIMUS
     Indication: BREAST CANCER
     Dosage: 10 MG, QD
     Route: 048
     Dates: start: 20151003, end: 20160120
  2. XARELTO [Concomitant]
     Active Substance: RIVAROXABAN
     Indication: THROMBOSIS
     Dosage: 1 DF OF 15 MG, QD
     Route: 048
  3. AROMASIN [Concomitant]
     Active Substance: EXEMESTANE
     Indication: BREAST CANCER
     Dosage: 1 DF OF 25 MG, QD
     Route: 048
     Dates: start: 201506

REACTIONS (12)
  - Blood cholesterol increased [Unknown]
  - Blood glucose increased [Unknown]
  - Decreased immune responsiveness [Unknown]
  - Vomiting [Recovering/Resolving]
  - Cough [Recovering/Resolving]
  - Fatigue [Recovering/Resolving]
  - Asthenia [Recovering/Resolving]
  - Urinary tract infection [Recovered/Resolved]
  - Pneumonia [Recovering/Resolving]
  - Back pain [Recovering/Resolving]
  - Bone disorder [Unknown]
  - Endocrine disorder [Unknown]

NARRATIVE: CASE EVENT DATE: 201510
